FAERS Safety Report 4294364-X (Version None)
Quarter: 2004Q1

REPORT INFORMATION
  Report Type: 
  Country: None (occurrence: None)
  Receive Date: 20040211
  Receipt Date: 20030506
  Transmission Date: 20041129
  Serious: Yes (Hospitalization)
  Sender: FDA-Public Use
  Company Number: A0407544A

PATIENT
  Age: 65 Year
  Sex: Male

DRUGS (1)
  1. MELPHALAN INJECTION (MELPHALAN) [Suspect]
     Indication: MULTIPLE MYELOMA
     Dosage: 390 MG/INTRAVENOUS
     Route: 042
     Dates: start: 20030217, end: 20030217

REACTIONS (13)
  - CANDIDIASIS [None]
  - CATHETER RELATED INFECTION [None]
  - DEHYDRATION [None]
  - DYSPEPSIA [None]
  - FAILURE TO THRIVE [None]
  - FATIGUE [None]
  - KERATITIS HERPETIC [None]
  - NAUSEA [None]
  - ORTHOSTATIC HYPOTENSION [None]
  - PHOTOPHOBIA [None]
  - STEM CELL TRANSPLANT [None]
  - SYSTEMIC CANDIDA [None]
  - VOMITING [None]
